FAERS Safety Report 6753784-1 (Version None)
Quarter: 2010Q2

REPORT INFORMATION
  Report Type: 
  Country: None (occurrence: None)
  Receive Date: 20100601
  Receipt Date: 20100518
  Transmission Date: 20101027
  Serious: Yes (Hospitalization)
  Sender: FDA-Public Use
  Company Number: MPS1-1000334

PATIENT
  Age: 5 Year
  Sex: Female
  Weight: 13 kg

DRUGS (1)
  1. ALDURAZYME [Suspect]
     Indication: MUCOPOLYSACCHARIDOSIS
     Dosage: 1.5 MG/KG,QOW

REACTIONS (2)
  - INFECTION [None]
  - PNEUMONIA [None]
